FAERS Safety Report 7801543-0 (Version None)
Quarter: 2011Q4

REPORT INFORMATION
  Report Type: 
  Country: None (occurrence: None)
  Receive Date: 20111007
  Receipt Date: 20111004
  Transmission Date: 20120403
  Serious: Yes (Death)
  Sender: FDA-Public Use
  Company Number: US-BAYER-201039164GPV

PATIENT
  Age: 65 Year
  Sex: Male
  Weight: 115 kg

DRUGS (11)
  1. SYNTHROID [Concomitant]
     Indication: HYPOTHYROIDISM
     Dosage: UNK
  2. NYSTATIN [Concomitant]
     Indication: CANDIDIASIS
     Dosage: UNK
  3. JANUVIA [Concomitant]
     Indication: DIABETES MELLITUS
     Dosage: UNK
  4. OPHTHALMOLOGICALS [Concomitant]
     Indication: EYE DISORDER
  5. HYDROCORTISONE [Concomitant]
     Indication: PSORIASIS
     Dosage: UNK
  6. CLOBETASOL PROPIONATE [Concomitant]
     Indication: PSORIASIS
     Dosage: UNK
  7. BENAZEPRIL HYDROCHLORIDE [Concomitant]
     Indication: HYPERTENSION
     Dosage: UNK
  8. NORVASC [Concomitant]
     Indication: HYPERTENSION
     Dosage: UNK
  9. TACLONEX [Concomitant]
     Indication: PSORIASIS
     Dosage: UNK
  10. SORAFENIB [Suspect]
     Indication: RENAL CELL CARCINOMA
     Route: 048
     Dates: start: 20100727, end: 20100906
  11. IMODIUM [Concomitant]
     Indication: DIARRHOEA
     Dosage: UNK

REACTIONS (1)
  - CARDIO-RESPIRATORY ARREST [None]
